FAERS Safety Report 6385335-8 (Version None)
Quarter: 2009Q4

REPORT INFORMATION
  Report Type: 
  Country: None (occurrence: None)
  Receive Date: 20091002
  Receipt Date: 20081107
  Transmission Date: 20100525
  Serious: No
  Sender: FDA-Public Use
  Company Number: US-ASTRAZENECA-2008UW16040

PATIENT
  Age: 84 Year
  Sex: Female
  Weight: 44.9 kg

DRUGS (6)
  1. ARIMIDEX [Suspect]
     Indication: BREAST CANCER
     Route: 048
  2. LASIX [Concomitant]
  3. AMOLODIPINE [Concomitant]
  4. ATENOLOL [Concomitant]
  5. LEVOTHYROXINE SODIUM [Concomitant]
  6. POTASSIUM CHLORIDE [Concomitant]

REACTIONS (6)
  - ANGER [None]
  - ARTHRALGIA [None]
  - EYE IRRITATION [None]
  - EYELASH THICKENING [None]
  - FOOD CRAVING [None]
  - PERSONALITY CHANGE [None]
